FAERS Safety Report 11912056 (Version 1)
Quarter: 2016Q1

REPORT INFORMATION
  Report Type: Report from Study
  Country: IT (occurrence: IT)
  Receive Date: 20160112
  Receipt Date: 20160112
  Transmission Date: 20160526
  Serious: Yes (Death, Hospitalization)
  Sender: FDA-Public Use
  Company Number: PHHO2012IT017480

PATIENT
  Age: 47 Year
  Sex: Female
  Weight: 55 kg

DRUGS (14)
  1. ASA [Concomitant]
     Active Substance: ASPIRIN
     Indication: PRODUCT USED FOR UNKNOWN INDICATION
     Dosage: 100 MG, UNK
     Route: 065
  2. NITROGLYCERIN. [Concomitant]
     Active Substance: NITROGLYCERIN
     Indication: CARDIAC DISORDER
     Dosage: UNK
     Route: 065
  3. TICLOPIDIN [Concomitant]
     Active Substance: TICLOPIDINE
     Indication: PRODUCT USED FOR UNKNOWN INDICATION
     Dosage: 250 MG, BID
     Route: 065
  4. RISEDRONATE [Concomitant]
     Active Substance: RISEDRONATE SODIUM
     Indication: OSTEOPOROSIS
     Dosage: 35 MG, QW
     Route: 065
  5. VALSARTAN. [Concomitant]
     Active Substance: VALSARTAN
     Indication: PRODUCT USED FOR UNKNOWN INDICATION
     Dosage: UNK
     Route: 065
  6. OMEGA 3 [Concomitant]
     Active Substance: OMEGA-3 FATTY ACIDS
     Indication: PRODUCT USED FOR UNKNOWN INDICATION
     Dosage: UNK
     Route: 065
  7. SPIRONOLACTONE. [Concomitant]
     Active Substance: SPIRONOLACTONE
     Indication: CARDIAC DISORDER
     Route: 065
  8. BISOPROLOL [Concomitant]
     Active Substance: BISOPROLOL
     Indication: CARDIAC DISORDER
     Dosage: 205 MG, BID
     Route: 065
  9. FUROSEMIDE. [Concomitant]
     Active Substance: FUROSEMIDE
     Indication: CARDIAC DISORDER
     Dosage: 2.5 MG, BID
     Route: 065
  10. DIGITALIS [Concomitant]
     Active Substance: DIGITALIS
     Indication: CARDIAC DISORDER
     Dosage: 0.0625
     Route: 065
  11. CANRENONE [Concomitant]
     Active Substance: CANRENONE
     Indication: PRODUCT USED FOR UNKNOWN INDICATION
     Dosage: UNK
     Route: 065
  12. CORDARONE [Concomitant]
     Active Substance: AMIODARONE HYDROCHLORIDE
     Indication: PRODUCT USED FOR UNKNOWN INDICATION
     Dosage: 25 MG, UNK
     Route: 065
  13. ATORVASTATIN [Concomitant]
     Active Substance: ATORVASTATIN
     Indication: PRODUCT USED FOR UNKNOWN INDICATION
     Dosage: 40 MG, UNK
     Route: 065
  14. SOM230 [Suspect]
     Active Substance: PASIREOTIDE
     Indication: PITUITARY-DEPENDENT CUSHING^S SYNDROME
     Dosage: 0.6 MG, BID
     Route: 065
     Dates: start: 20120515

REACTIONS (2)
  - Cholelithiasis [Recovered/Resolved]
  - Death [Fatal]

NARRATIVE: CASE EVENT DATE: 20121119
